FAERS Safety Report 22153499 (Version 1)
Quarter: 2023Q1

REPORT INFORMATION
  Report Type: Report from Study
  Country: CA (occurrence: CA)
  Receive Date: 20230330
  Receipt Date: 20230330
  Transmission Date: 20230418
  Serious: Yes (Other)
  Sender: FDA-Public Use
  Company Number: CA-ABBVIE-4708627

PATIENT
  Sex: Female

DRUGS (1)
  1. HUMIRA [Suspect]
     Active Substance: ADALIMUMAB
     Indication: Crohn^s disease
     Route: 058
     Dates: start: 20190307

REACTIONS (5)
  - Pulmonary thrombosis [Unknown]
  - Thrombosis [Unknown]
  - Urinary tract infection [Unknown]
  - Diabetes mellitus [Unknown]
  - Abdominal pain [Unknown]
